FAERS Safety Report 10335833 (Version 2)
Quarter: 2014Q3

REPORT INFORMATION
  Report Type: Spontaneous
  Country: US (occurrence: US)
  Receive Date: 20140723
  Receipt Date: 20140723
  Transmission Date: 20150326
  Serious: No
  Sender: FDA-Public Use
  Company Number: US-BRISTOL-MYERS SQUIBB COMPANY-19142744

PATIENT
  Age: 65 Year
  Sex: Female

DRUGS (11)
  1. DYAZIDE [Concomitant]
     Active Substance: HYDROCHLOROTHIAZIDE\TRIAMTERENE
     Dosage: 1DF:1 CAPS/DAY
  2. LOVENOX [Suspect]
     Active Substance: ENOXAPARIN SODIUM
  3. SIMVASTATIN. [Concomitant]
     Active Substance: SIMVASTATIN
  4. DIGOXIN. [Concomitant]
     Active Substance: DIGOXIN
  5. LORAZEPAM. [Concomitant]
     Active Substance: LORAZEPAM
  6. AMOXICILLIN. [Concomitant]
     Active Substance: AMOXICILLIN
  7. LOSARTAN POTASSIUM. [Concomitant]
     Active Substance: LOSARTAN POTASSIUM
  8. PROPANOLOL HYDROCHLORIDE [Concomitant]
  9. COUMADIN [Suspect]
     Active Substance: WARFARIN SODIUM
     Dosage: BLISTER PACK:LOT: 1M47320B, EXP: OCT2013
  10. OXYBUTYNIN [Concomitant]
     Active Substance: OXYBUTYNIN
  11. GABAPENTIN. [Concomitant]
     Active Substance: GABAPENTIN

REACTIONS (1)
  - International normalised ratio fluctuation [Unknown]
